FAERS Safety Report 12192321 (Version 2)
Quarter: 2016Q2

REPORT INFORMATION
  Report Type: Spontaneous
  Country: US (occurrence: US)
  Receive Date: 20160318
  Receipt Date: 20160427
  Transmission Date: 20160815
  Serious: Yes (Other)
  Sender: FDA-Public Use
  Company Number: US-BAYER-2016-051757

PATIENT
  Age: 27 Year
  Sex: Female
  Weight: 81.18 kg

DRUGS (1)
  1. MIRENA [Suspect]
     Active Substance: LEVONORGESTREL
     Indication: CONTRACEPTION
     Dosage: 20 MCG/24HR, CONT
     Route: 015
     Dates: start: 20150401

REACTIONS (7)
  - Embedded device [Not Recovered/Not Resolved]
  - Post procedural discharge [None]
  - Off label use [None]
  - Device difficult to use [None]
  - Uterine adhesions [None]
  - Uterine perforation [None]
  - Medical device pain [Not Recovered/Not Resolved]

NARRATIVE: CASE EVENT DATE: 20151217
